FAERS Safety Report 11898716 (Version 1)
Quarter: 2016Q1

REPORT INFORMATION
  Report Type: Spontaneous
  Country: US (occurrence: None)
  Receive Date: 20160107
  Receipt Date: 20160107
  Transmission Date: 20160526
  Serious: No
  Sender: FDA-Public Use
  Company Number: None

PATIENT
  Age: 59 Year
  Sex: Female

DRUGS (1)
  1. HUMIRA [Suspect]
     Active Substance: ADALIMUMAB
     Dosage: 40 MG INJECT 1 PEN SQ EVERY OTHER
     Route: 058
     Dates: start: 20151210, end: 201601

REACTIONS (8)
  - Decreased appetite [None]
  - Migraine [None]
  - Mood swings [None]
  - Insomnia [None]
  - Nausea [None]
  - Anxiety [None]
  - Anger [None]
  - Influenza like illness [None]

NARRATIVE: CASE EVENT DATE: 20151210
